FAERS Safety Report 17818733 (Version 5)
Quarter: 2020Q2

REPORT INFORMATION
  Report Type: Spontaneous
  Country: US (occurrence: US)
  Receive Date: 20200522
  Receipt Date: 20200622
  Transmission Date: 20200714
  Serious: No
  Sender: FDA-Public Use
  Company Number: US-STRONGBRIDGE BIOPHARMA-2020-STR-000121

PATIENT
  Age: 45 Year
  Sex: Female

DRUGS (3)
  1. KEVEYIS [Suspect]
     Active Substance: DICHLORPHENAMIDE
     Indication: FAMILIAL PERIODIC PARALYSIS
     Dosage: 50 MG, BID
     Route: 048
     Dates: start: 20200515
  2. KEVEYIS [Suspect]
     Active Substance: DICHLORPHENAMIDE
     Dosage: 25 MG, BID
     Route: 048
  3. KEVEYIS [Suspect]
     Active Substance: DICHLORPHENAMIDE
     Indication: MYOTONIA
     Dosage: 50 MG, BID
     Route: 048
     Dates: start: 20200515

REACTIONS (13)
  - Dysgeusia [Unknown]
  - Dermatitis contact [Unknown]
  - Muscle spasms [Not Recovered/Not Resolved]
  - Balance disorder [Unknown]
  - Muscle spasms [Unknown]
  - Hypoaesthesia [Unknown]
  - Paraesthesia [Unknown]
  - Paraesthesia [Not Recovered/Not Resolved]
  - Limb discomfort [Unknown]
  - Abdominal pain [Not Recovered/Not Resolved]
  - Decreased appetite [Unknown]
  - Wrong technique in product usage process [Unknown]
  - Tremor [Not Recovered/Not Resolved]

NARRATIVE: CASE EVENT DATE: 20200515
